FAERS Safety Report 12712034 (Version 1)
Quarter: 2016Q3

REPORT INFORMATION
  Report Type: Report from Study
  Country: US (occurrence: US)
  Receive Date: 20160902
  Receipt Date: 20160902
  Transmission Date: 20161109
  Serious: No
  Sender: FDA-Public Use
  Company Number: PHEH2016US022202

PATIENT
  Sex: Male

DRUGS (1)
  1. SOM 230C [Suspect]
     Active Substance: PASIREOTIDE
     Indication: PRODUCT USED FOR UNKNOWN INDICATION
     Dosage: 40 MG, QMO (ONCE A MONTH)
     Route: 030

REACTIONS (1)
  - Blood growth hormone abnormal [Unknown]
